FAERS Safety Report 7295327-2 (Version None)
Quarter: 2011Q1

REPORT INFORMATION
  Report Type: 
  Country: None (occurrence: None)
  Receive Date: 20110211
  Receipt Date: 20110211
  Transmission Date: 20110831
  Serious: No
  Sender: FDA-Public Use
  Company Number: None

PATIENT
  Sex: Female

DRUGS (1)
  1. CETIRIZINE HYDROCHLORIDE [Suspect]
     Indication: HYPERSENSITIVITY
     Dosage: 10MG OUNCE PER DAY PO
     Route: 048
     Dates: start: 20110126, end: 20110210

REACTIONS (2)
  - EPISTAXIS [None]
  - EAR PAIN [None]
